FAERS Safety Report 21655735 (Version 1)
Quarter: 2022Q4

REPORT INFORMATION
  Report Type: Spontaneous
  Country: CN (occurrence: CN)
  Receive Date: 20221129
  Receipt Date: 20221129
  Transmission Date: 20230113
  Serious: Yes (Life-Threatening)
  Sender: FDA-Public Use
  Company Number: CN-BoehringerIngelheim-2022-BI-204512

PATIENT
  Age: 71 Year
  Sex: Male
  Weight: 90 kg

DRUGS (2)
  1. ALTEPLASE [Suspect]
     Active Substance: ALTEPLASE
     Indication: Cerebral infarction
     Route: 042
     Dates: start: 20221110, end: 20221110
  2. SODIUM CHLORIDE [Concomitant]
     Active Substance: SODIUM CHLORIDE
     Indication: Medication dilution
     Route: 042
     Dates: start: 20221110, end: 20221110

REACTIONS (3)
  - Cerebral haemorrhage [Not Recovered/Not Resolved]
  - Urinary retention [Not Recovered/Not Resolved]
  - Hydrocephalus [Not Recovered/Not Resolved]

NARRATIVE: CASE EVENT DATE: 20221111
